FAERS Safety Report 19086023 (Version 1)
Quarter: 2021Q2

REPORT INFORMATION
  Report Type: Spontaneous
  Country: US (occurrence: US)
  Receive Date: 20210402
  Receipt Date: 20210402
  Transmission Date: 20210717
  Serious: Yes (Death, Other)
  Sender: FDA-Public Use
  Company Number: US-AMGEN-USASP2021047105

PATIENT

DRUGS (4)
  1. PEMBROLIZUMAB. [Concomitant]
     Active Substance: PEMBROLIZUMAB
     Indication: NON-HODGKIN^S LYMPHOMA
     Dosage: 200 MILLIGRAM, Q4WK (200MG INTRAVENOUSLY EVERY 4 WEEKS)
     Route: 042
  2. POMALIDOMIDE [Concomitant]
     Active Substance: POMALIDOMIDE
     Indication: NON-HODGKIN^S LYMPHOMA
     Dosage: 4 MILLIGRAM, QD (4MG ORALLY EVERY DAY FOR DAYS 1?21 OF A 28?DAY CYCLE)
     Route: 048
  3. POMALIDOMIDE [Concomitant]
     Active Substance: POMALIDOMIDE
     Dosage: 3 MILLIGRAM (DOSE REDUCTION TO 3 MG)
     Route: 065
  4. PEGFILGRASTIM [Suspect]
     Active Substance: PEGFILGRASTIM
     Indication: NEUTROPENIA
     Dosage: UNK
     Route: 065

REACTIONS (4)
  - Therapy non-responder [Unknown]
  - Death [Fatal]
  - Guillain-Barre syndrome [Recovered/Resolved]
  - Hepatitis [Recovered/Resolved]
